FAERS Safety Report 16095635 (Version 5)
Quarter: 2020Q4

REPORT INFORMATION
  Report Type: Spontaneous
  Country: DE (occurrence: DE)
  Receive Date: 20190320
  Receipt Date: 20201221
  Transmission Date: 20210113
  Serious: Yes (Life-Threatening, Other)
  Sender: FDA-Public Use
  Company Number: DE-BEH-2019100363

PATIENT
  Age: 68 Year
  Sex: Male

DRUGS (11)
  1. IBRUTINIB [Concomitant]
     Active Substance: IBRUTINIB
     Indication: TUMOUR TREATING FIELDS THERAPY
     Dosage: UNK
     Route: 065
     Dates: start: 201805
  2. PIPERACILLIN AND TAZOBACTAM [Concomitant]
     Active Substance: PIPERACILLIN SODIUM\TAZOBACTAM SODIUM
     Dosage: 4.5 GRAM, TID
     Dates: start: 20190221, end: 20190227
  3. ENOXAPARIN [Concomitant]
     Active Substance: ENOXAPARIN
     Dosage: 0.2 MILLILITER, QD
     Route: 058
     Dates: start: 20190223
  4. VORICONAZOL [Concomitant]
     Active Substance: VORICONAZOLE
     Dosage: 200 MILLIGRAM, BID
     Route: 048
     Dates: start: 20190227
  5. PRIVIGEN [Suspect]
     Active Substance: HUMAN IMMUNOGLOBULIN G
     Indication: SECONDARY IMMUNODEFICIENCY
  6. VORICONAZOL [Concomitant]
     Active Substance: VORICONAZOLE
     Dosage: 400 MILLIGRAM
     Route: 042
     Dates: start: 20190225, end: 20190227
  7. POTASSIUM [Concomitant]
     Active Substance: POTASSIUM
     Dosage: UNK
     Route: 048
     Dates: start: 20190223
  8. PRIVIGEN [Suspect]
     Active Substance: HUMAN IMMUNOGLOBULIN G
     Indication: IMMUNODEFICIENCY
     Dosage: 10 GRAM
     Route: 042
     Dates: start: 20190227, end: 20190227
  9. ATMADISC [Concomitant]
     Active Substance: FLUTICASONE PROPIONATE\SALMETEROL XINAFOATE
     Dosage: 500 MICROGRAM, QD
  10. ALLOPURINOL. [Concomitant]
     Active Substance: ALLOPURINOL
     Dosage: 100 MILLIGRAM
     Route: 048
  11. ENOXAPARIN [Concomitant]
     Active Substance: ENOXAPARIN
     Dosage: 0.4 UNK
     Route: 058
     Dates: start: 20190221, end: 20190222

REACTIONS (14)
  - Bronchospasm [Recovered/Resolved]
  - Tachypnoea [Recovered/Resolved]
  - Hypersensitivity [Recovered/Resolved]
  - Hypersensitivity [Unknown]
  - Chills [Unknown]
  - Pyrexia [Unknown]
  - Respiratory failure [Recovered/Resolved]
  - Left ventricular dysfunction [Unknown]
  - Troponin T increased [Unknown]
  - Wheezing [Recovered/Resolved]
  - Tachycardia [Recovered/Resolved]
  - Pulmonary oedema [Unknown]
  - Pruritus [Recovered/Resolved]
  - Dyspnoea [Recovered/Resolved]

NARRATIVE: CASE EVENT DATE: 201902
